FAERS Safety Report 4303235-1 (Version None)
Quarter: 2004Q1

REPORT INFORMATION
  Report Type: 
  Country: None (occurrence: None)
  Receive Date: 20040223
  Receipt Date: 20040210
  Transmission Date: 20041129
  Serious: Yes (Other)
  Sender: FDA-Public Use
  Company Number: HQWYE394015JAN04

PATIENT
  Age: 30 Year
  Sex: Female
  Weight: 63.56 kg

DRUGS (1)
  1. EFFEXOR XR [Suspect]
     Indication: DEPRESSION
     Dosage: ORAL
     Route: 048
     Dates: start: 20020520, end: 20030923

REACTIONS (1)
  - ATRIOVENTRICULAR BLOCK COMPLETE [None]
